FAERS Safety Report 8769676 (Version 2)
Quarter: 2012Q4

REPORT INFORMATION
  Report Type: 
  Country: US (occurrence: US)
  Receive Date: 20120905
  Receipt Date: 20120924
  Transmission Date: 20130627
  Serious: Yes (Hospitalization)
  Sender: FDA-Public Use
  Company Number: US-US-EMD SERONO, INC.-7158397

PATIENT
  Age: 49 Year
  Sex: Female
  Weight: 136 kg

DRUGS (13)
  1. REBIF [Suspect]
     Indication: MULTIPLE SCLEROSIS
     Route: 058
     Dates: start: 20081027
  2. IRON [Concomitant]
     Indication: PRODUCT USED FOR UNKNOWN INDICATION
  3. TRAJENTA [Concomitant]
     Indication: DIABETES MELLITUS
     Dates: start: 201206, end: 20120817
  4. ACTOS [Concomitant]
     Indication: DIABETES MELLITUS
     Dates: start: 201106, end: 20120817
  5. CYMBALTA [Concomitant]
     Indication: DEPRESSION
     Dates: start: 2008, end: 20120817
  6. LISINOPRIL [Concomitant]
     Indication: HYPERTENSION
     Dates: start: 201106
  7. CARVEDILOL [Concomitant]
     Indication: CARDIAC DISORDER
     Dates: start: 201106
  8. CARVEDILOL [Concomitant]
     Indication: HYPERTENSION
  9. CRESTOR [Concomitant]
     Indication: BLOOD CHOLESTEROL
     Dates: start: 201106
  10. FISH OIL [Concomitant]
     Indication: PRODUCT USED FOR UNKNOWN INDICATION
  11. VITAMIN D [Concomitant]
     Indication: PRODUCT USED FOR UNKNOWN INDICATION
  12. SUPER B [Concomitant]
     Indication: PRODUCT USED FOR UNKNOWN INDICATION
  13. MAGNESIUM [Concomitant]
     Indication: PRODUCT USED FOR UNKNOWN INDICATION

REACTIONS (1)
  - Diabetic ketoacidosis [Recovering/Resolving]
